FAERS Safety Report 24338392 (Version 1)
Quarter: 2024Q3

REPORT INFORMATION
  Report Type: Spontaneous
  Country: US (occurrence: US)
  Receive Date: 20240919
  Receipt Date: 20240919
  Transmission Date: 20241016
  Serious: No
  Sender: ALVOGEN
  Company Number: US-BMS-IMIDS-REMS_SI-11726245

PATIENT
  Sex: Female

DRUGS (2)
  1. LENALIDOMIDE [Suspect]
     Active Substance: LENALIDOMIDE
     Indication: Product used for unknown indication
     Dosage: SOMETIMES 5MG CAPS 3XS PER DAY, 15MG (5 MG X 21 DAYS)
  2. LENALIDOMIDE [Suspect]
     Active Substance: LENALIDOMIDE
     Indication: Product used for unknown indication
     Dosage: SOME DAYS 10 MG (5 MG X 2)

REACTIONS (2)
  - Diarrhoea [Unknown]
  - Off label use [Unknown]

NARRATIVE: CASE EVENT DATE: 20240101
